FAERS Safety Report 4942882-0 (Version None)
Quarter: 2006Q1

REPORT INFORMATION
  Report Type: 
  Country: None (occurrence: None)
  Receive Date: 20060314
  Receipt Date: 20060303
  Transmission Date: 20060701
  Serious: Yes (Other)
  Sender: FDA-Public Use
  Company Number: 2006AC00409

PATIENT
  Age: 52 Year
  Sex: Male

DRUGS (11)
  1. QUETIAPINE [Suspect]
     Route: 048
  2. QUETIAPINE [Suspect]
     Route: 048
  3. QUETIAPINE [Suspect]
     Route: 048
  4. QUETIAPINE [Suspect]
     Route: 048
  5. CLONAZEPAM [Suspect]
     Route: 048
  6. BENZTROPINE MESYLATE [Suspect]
     Route: 048
  7. ENALAPRIL MALEATE [Suspect]
     Route: 048
  8. ENALAPRIL MALEATE [Suspect]
     Route: 048
  9. HALOPERIDOL DECANOATE [Suspect]
     Dosage: EVERY TWELVE DAYS
     Route: 030
  10. MULTI-VITAMIN [Concomitant]
     Route: 048
  11. FOLIC ACID [Concomitant]
     Route: 048

REACTIONS (5)
  - AGITATION [None]
  - DIZZINESS [None]
  - FATIGUE [None]
  - PARKINSONISM [None]
  - TREATMENT NONCOMPLIANCE [None]
